FAERS Safety Report 5468395-8 (Version None)
Quarter: 2007Q3

REPORT INFORMATION
  Report Type: 
  Country: None (occurrence: None)
  Receive Date: 20070921
  Receipt Date: 20070911
  Transmission Date: 20080115
  Serious: Yes (Hospitalization)
  Sender: FDA-Public Use
  Company Number: TCI2007A04832

PATIENT
  Age: 57 Year
  Sex: Male

DRUGS (4)
  1. ACTOS [Suspect]
     Indication: DIABETES MELLITUS
     Dosage: 15 MG (15 MG, 1 D) PER ORAL
     Route: 048
     Dates: start: 20070423, end: 20070517
  2. TEGRETOL [Concomitant]
  3. ZOLPIDEM TARTRATE [Concomitant]
  4. ZYRTEC [Concomitant]

REACTIONS (3)
  - ATRIAL FIBRILLATION [None]
  - PYREXIA [None]
  - RESPIRATORY FAILURE [None]
